FAERS Safety Report 5288990-9 (Version None)
Quarter: 2007Q2

REPORT INFORMATION
  Report Type: 
  Country: None (occurrence: None)
  Receive Date: 20070405
  Receipt Date: 20070326
  Transmission Date: 20071010
  Serious: Yes (Other)
  Sender: FDA-Public Use
  Company Number: JP-PFIZER INC-2007016882

PATIENT
  Age: 60 Year
  Sex: Female

DRUGS (5)
  1. VFEND [Suspect]
     Indication: CRYPTOCOCCOSIS
  2. MARZULENE S [Concomitant]
     Route: 048
  3. ULCERMIN [Concomitant]
  4. LAC B [Concomitant]
     Route: 048
  5. MAGNESIUM OXIDE [Concomitant]
     Route: 048

REACTIONS (1)
  - INAPPROPRIATE ANTIDIURETIC HORMONE SECRETION [None]
